FAERS Safety Report 18642587 (Version 1)
Quarter: 2020Q4

REPORT INFORMATION
  Report Type: Spontaneous
  Country: US (occurrence: US)
  Receive Date: 20201218
  Receipt Date: 20201218
  Transmission Date: 20210114
  Serious: Yes (Other)
  Sender: FDA-Public Use
  Company Number: None

PATIENT
  Age: 59 Year
  Sex: Male
  Weight: 100.24 kg

DRUGS (1)
  1. ESCITALOPRAM 20 MG [Suspect]
     Active Substance: ESCITALOPRAM OXALATE
     Indication: MAJOR DEPRESSION
     Route: 048
     Dates: start: 20190710, end: 20200512

REACTIONS (4)
  - Illness [None]
  - Nausea [None]
  - Drug ineffective [None]
  - Abdominal pain upper [None]

NARRATIVE: CASE EVENT DATE: 20191116
